FAERS Safety Report 23714131 (Version 5)
Quarter: 2025Q2

REPORT INFORMATION
  Report Type: Spontaneous
  Country: US (occurrence: US)
  Receive Date: 20240405
  Receipt Date: 20250626
  Transmission Date: 20250717
  Serious: No
  Sender: SANOFI AVENTIS
  Company Number: US-SA-SAC20240401000176

PATIENT
  Age: 58 Year
  Sex: Female

DRUGS (1)
  1. DUPIXENT [Suspect]
     Active Substance: DUPILUMAB
     Indication: Product used for unknown indication
     Dosage: 300 MG, QOW
     Route: 058

REACTIONS (5)
  - Dry skin [Recovering/Resolving]
  - Injection site haemorrhage [Unknown]
  - Pruritus [Unknown]
  - Dry eye [Unknown]
  - Injection site pain [Unknown]
